FAERS Safety Report 21651025 (Version 1)
Quarter: 2022Q4

REPORT INFORMATION
  Report Type: Spontaneous
  Country: US (occurrence: US)
  Receive Date: 20221128
  Receipt Date: 20221128
  Transmission Date: 20230113
  Serious: No
  Sender: FDA-Public Use
  Company Number: US-SA-SAC20221128000216

PATIENT
  Age: 71 Year
  Sex: Female

DRUGS (3)
  1. KEVZARA [Suspect]
     Active Substance: SARILUMAB
     Indication: Rheumatoid arthritis
     Dosage: 200 MG, QOW
     Route: 058
     Dates: start: 201903
  2. KEVZARA [Suspect]
     Active Substance: SARILUMAB
     Indication: Sjogren^s syndrome
  3. KEVZARA [Suspect]
     Active Substance: SARILUMAB
     Indication: Osteoporosis

REACTIONS (1)
  - Product dose omission in error [Unknown]
